FAERS Safety Report 21959974 (Version 11)
Quarter: 2024Q2

REPORT INFORMATION
  Report Type: Report from Study
  Country: CA (occurrence: CA)
  Receive Date: 20230206
  Receipt Date: 20240628
  Transmission Date: 20240716
  Serious: Yes (Other)
  Sender: FDA-Public Use
  Company Number: CA-JNJFOC-20220453305

PATIENT
  Age: 70 Year
  Sex: Female
  Weight: 73 kg

DRUGS (23)
  1. STELARA [Suspect]
     Active Substance: USTEKINUMAB
     Indication: Crohn^s disease
     Dosage: ON 10-FEB-2021 PATIENT RECEIVED STELARA DOSE
     Route: 040
  2. STELARA [Suspect]
     Active Substance: USTEKINUMAB
     Dosage: ON 27-JAN-2023, THE PATIENT RECEIVED 15TH LATEST INFUSION OF 90 MG
     Route: 058
  3. STELARA [Suspect]
     Active Substance: USTEKINUMAB
     Route: 058
  4. STELARA [Suspect]
     Active Substance: USTEKINUMAB
     Route: 058
  5. STELARA [Suspect]
     Active Substance: USTEKINUMAB
     Route: 058
  6. STELARA [Suspect]
     Active Substance: USTEKINUMAB
     Dosage: THERAPY START DATE: 10/FEB/2021
     Route: 058
  7. STELARA [Suspect]
     Active Substance: USTEKINUMAB
     Dosage: INFUSION ADMINISTERED AT 8 WEEKS AND 2 DAYS PRESCRIPTION EVERY 4 WEEKS
     Route: 040
  8. STELARA [Suspect]
     Active Substance: USTEKINUMAB
     Dosage: THERAPY START DATE: 10/FEB/2021
     Route: 058
  9. STELARA [Suspect]
     Active Substance: USTEKINUMAB
     Dosage: THERAPY START DATE: 10/FEB/2021
     Route: 058
  10. RISEDRONATE SODIUM [Concomitant]
     Active Substance: RISEDRONATE SODIUM
     Indication: Product used for unknown indication
     Route: 065
  11. AMITRIPTYLINE [Concomitant]
     Active Substance: AMITRIPTYLINE
     Indication: Product used for unknown indication
     Route: 065
  12. MOMETASONE [Concomitant]
     Active Substance: MOMETASONE
     Indication: Product used for unknown indication
     Route: 065
  13. CHOLECALCIFEROL [Concomitant]
     Active Substance: CHOLECALCIFEROL
     Indication: Product used for unknown indication
     Route: 065
  14. CHOLECALCIFEROL [Concomitant]
     Active Substance: CHOLECALCIFEROL
     Indication: Product used for unknown indication
     Route: 065
  15. VALACYCLOVIR [Concomitant]
     Active Substance: VALACYCLOVIR HYDROCHLORIDE
     Indication: Product used for unknown indication
     Route: 065
  16. VENLAFAXINE HYDROCHLORIDE [Concomitant]
     Active Substance: VENLAFAXINE HYDROCHLORIDE
     Indication: Product used for unknown indication
  17. EFUDEX [Concomitant]
     Active Substance: FLUOROURACIL
     Indication: Product used for unknown indication
  18. CLOBETASOL [Concomitant]
     Active Substance: CLOBETASOL
     Indication: Product used for unknown indication
  19. NYADERM [Concomitant]
     Indication: Product used for unknown indication
  20. HYDROCORTISONE [Concomitant]
     Active Substance: HYDROCORTISONE\HYDROCORTISONE ACETATE
  21. CLARITHROMYCIN [Concomitant]
     Active Substance: CLARITHROMYCIN
     Indication: Bronchitis
  22. CLARITHROMYCIN [Concomitant]
     Active Substance: CLARITHROMYCIN
  23. DEXILANT [Concomitant]
     Active Substance: DEXLANSOPRAZOLE

REACTIONS (15)
  - Rectal haemorrhage [Not Recovered/Not Resolved]
  - Neoplasm malignant [Recovering/Resolving]
  - Precancerous skin lesion [Not Recovered/Not Resolved]
  - Diarrhoea haemorrhagic [Recovered/Resolved]
  - Incision site complication [Recovering/Resolving]
  - Incision site erythema [Recovering/Resolving]
  - Post procedural oedema [Recovering/Resolving]
  - Abdominal pain [Unknown]
  - Oropharyngeal pain [Not Recovered/Not Resolved]
  - Cough [Not Recovered/Not Resolved]
  - Bronchitis [Recovered/Resolved]
  - Diarrhoea [Unknown]
  - Faeces discoloured [Unknown]
  - Abdominal pain upper [Unknown]
  - Haemorrhage [Unknown]

NARRATIVE: CASE EVENT DATE: 20230101
